FAERS Safety Report 7768968-3 (Version None)
Quarter: 2011Q3

REPORT INFORMATION
  Report Type: 
  Country: None (occurrence: None)
  Receive Date: 20110922
  Receipt Date: 20110711
  Transmission Date: 20111222
  Serious: No
  Sender: FDA-Public Use
  Company Number: US-ASTRAZENECA-2011SE28049

PATIENT
  Age: 50 Year
  Sex: Female
  Weight: 81.6 kg

DRUGS (6)
  1. KLONOPIN [Concomitant]
  2. SEROQUEL [Suspect]
     Indication: SCHIZOAFFECTIVE DISORDER
     Route: 048
     Dates: start: 19960101, end: 20110701
  3. SEROQUEL [Suspect]
     Route: 048
     Dates: start: 20110101, end: 20110701
  4. TYLENOL 3 WITH CODEINE [Concomitant]
  5. VITAMIN TAB [Concomitant]
  6. IBUPROFEN [Concomitant]

REACTIONS (10)
  - FATIGUE [None]
  - ABNORMAL DREAMS [None]
  - HYPERPHAGIA [None]
  - DRUG DOSE OMISSION [None]
  - ADVERSE DRUG REACTION [None]
  - FLASHBACK [None]
  - HALLUCINATION, AUDITORY [None]
  - WRONG DRUG ADMINISTERED [None]
  - INSOMNIA [None]
  - IRRITABILITY [None]
